FAERS Safety Report 15540430 (Version 1)
Quarter: 2018Q4

REPORT INFORMATION
  Report Type: Spontaneous
  Country: US (occurrence: US)
  Receive Date: 20181023
  Receipt Date: 20181023
  Transmission Date: 20190205
  Serious: No
  Sender: FDA-Public Use
  Company Number: US-PFIZER INC-2018394412

PATIENT
  Sex: Female

DRUGS (2)
  1. IBUPROFEN. [Suspect]
     Active Substance: IBUPROFEN
     Dosage: UNK
  2. CHAPSTICK MOISTURIZER [Suspect]
     Active Substance: OCTINOXATE\OXYBENZONE\PETROLATUM
     Dosage: UNK

REACTIONS (5)
  - Product storage error [Unknown]
  - Hypoaesthesia oral [Unknown]
  - Product physical issue [Unknown]
  - Accidental exposure to product [Unknown]
  - Product taste abnormal [Unknown]
